APPROVED DRUG PRODUCT: EFAVIRENZ, LAMIVUDINE AND TENOFOVIR DISOPROXIL FUMARATE
Active Ingredient: EFAVIRENZ; LAMIVUDINE; TENOFOVIR DISOPROXIL FUMARATE
Strength: 400MG;300MG;300MG
Dosage Form/Route: TABLET;ORAL
Application: N210649 | Product #001
Applicant: MACLEODS PHARMACEUTICALS LTD
Approved: Mar 15, 2019 | RLD: No | RS: No | Type: DISCN